FAERS Safety Report 13883219 (Version 1)
Quarter: 2017Q3

REPORT INFORMATION
  Report Type: Report from Study
  Country: None (occurrence: AR)
  Receive Date: 20170818
  Receipt Date: 20170818
  Transmission Date: 20171127
  Serious: Yes (Hospitalization)
  Sender: FDA-Public Use
  Company Number: AR-ABBVIE-17P-007-2074948-00

PATIENT
  Age: 57 Year
  Sex: Female

DRUGS (1)
  1. VIEKIRA PAK [Suspect]
     Active Substance: DASABUVIR\OMBITASVIR\PARITAPREVIR\RITONAVIR
     Indication: HEPATITIS C
     Dosage: 3 AT MORNING AND 1 AT NIGHT
     Route: 048
     Dates: start: 20160805, end: 20161205

REACTIONS (1)
  - Arteriovenous fistula occlusion [Recovering/Resolving]

NARRATIVE: CASE EVENT DATE: 20170801
